FAERS Safety Report 17462642 (Version 1)
Quarter: 2020Q1

REPORT INFORMATION
  Report Type: Spontaneous
  Country: US (occurrence: US)
  Receive Date: 20200226
  Receipt Date: 20200226
  Transmission Date: 20200409
  Serious: No
  Sender: FDA-Public Use
  Company Number: NVSC2020US054080

PATIENT
  Age: 91 Year
  Sex: Female

DRUGS (1)
  1. BEOVU [Suspect]
     Active Substance: BROLUCIZUMAB-DBLL
     Indication: NEOVASCULAR AGE-RELATED MACULAR DEGENERATION
     Dosage: 6 MG (MONTHLY EVERY 25- 31 DAYS FOR FIRST THREE DOSES, FOLLOWED BY ONE DOSE EVERY 8 - 12 WEEKS)
     Route: 050
     Dates: start: 20200214, end: 20200214

REACTIONS (1)
  - Eye inflammation [Unknown]

NARRATIVE: CASE EVENT DATE: 20200225
